FAERS Safety Report 7369037-7 (Version None)
Quarter: 2011Q1

REPORT INFORMATION
  Report Type: 
  Country: None (occurrence: None)
  Receive Date: 20110309
  Receipt Date: 20110301
  Transmission Date: 20110831
  Serious: Yes (Hospitalization)
  Sender: FDA-Public Use
  Company Number: WAES 1103USC00001

PATIENT
  Age: 14 Year
  Sex: Female
  Weight: 53.978 kg

DRUGS (4)
  1. RIZATRIPTAN BENZOATE [Suspect]
     Indication: MIGRAINE
     Dosage: 10 MG/PRN/PO
     Route: 048
     Dates: start: 20100318, end: 20100822
  2. CHOLECALCIFEROL [Concomitant]
  3. AMITRIPTYLINE HYDROCHLORIDE [Concomitant]
  4. AMPHETAMINE ASPARTATE (+) AMPHET [Concomitant]

REACTIONS (2)
  - CONDITION AGGRAVATED [None]
  - MIGRAINE [None]
